FAERS Safety Report 7493285-9 (Version None)
Quarter: 2011Q2

REPORT INFORMATION
  Report Type: 
  Country: None (occurrence: None)
  Receive Date: 20110520
  Receipt Date: 20110425
  Transmission Date: 20111010
  Serious: Yes (Hospitalization, Other)
  Sender: FDA-Public Use
  Company Number: US-BAYER-2011-020920

PATIENT
  Age: 38 Year
  Sex: Female
  Weight: 79 kg

DRUGS (6)
  1. THYROXIN [Concomitant]
     Indication: HYPOTHYROIDISM
  2. ALBUTEROL [Concomitant]
     Indication: PRODUCT USED FOR UNKNOWN INDICATION
     Dosage: UNK UNK, PRN
  3. YASMIN [Suspect]
     Indication: POLYCYSTIC OVARIES
     Dosage: 1 UNK, UNK
     Dates: start: 20020501, end: 20020801
  4. PROZAC [Concomitant]
     Indication: PRODUCT USED FOR UNKNOWN INDICATION
     Dosage: 40 MG, QD
  5. WELLBUTRIN SR [Concomitant]
     Indication: PRODUCT USED FOR UNKNOWN INDICATION
     Dosage: 150 MG, QD
  6. ADVAIR DISKUS 100/50 [Concomitant]
     Indication: PRODUCT USED FOR UNKNOWN INDICATION
     Dosage: UNK UNK, BID

REACTIONS (3)
  - PULMONARY INFARCTION [None]
  - PLEURITIC PAIN [None]
  - PULMONARY EMBOLISM [None]
